FAERS Safety Report 21227588 (Version 1)
Quarter: 2022Q3

REPORT INFORMATION
  Report Type: Spontaneous
  Country: US (occurrence: US)
  Receive Date: 20220818
  Receipt Date: 20220818
  Transmission Date: 20221026
  Serious: No
  Sender: FDA-Public Use
  Company Number: US-BRISTOL-MYERS SQUIBB COMPANY-2022-082233

PATIENT
  Age: 73 Year
  Sex: Female
  Weight: 72.57 kg

DRUGS (1)
  1. ELIQUIS [Suspect]
     Active Substance: APIXABAN
     Indication: Cerebrovascular accident prophylaxis
     Dosage: LOT # LB2041A,  EXPIRATION MAR2022?LOT # LB2001A,  EXPIRATION FEB2022
     Route: 065
     Dates: start: 2019

REACTIONS (2)
  - Prescribed underdose [Unknown]
  - Circumstance or information capable of leading to medication error [Unknown]
